FAERS Safety Report 9499172 (Version 4)
Quarter: 2014Q1

REPORT INFORMATION
  Report Type: Report from Study
  Country: CO (occurrence: CO)
  Receive Date: 20130905
  Receipt Date: 20140313
  Transmission Date: 20141002
  Serious: Yes (Disabling, Other)
  Sender: FDA-Public Use
  Company Number: CO-ROCHE-1270218

PATIENT
  Age: 76 Year
  Sex: Male
  Weight: 75 kg

DRUGS (2)
  1. LUCENTIS [Suspect]
     Indication: VISUAL ACUITY REDUCED
     Route: 050
     Dates: start: 20130422, end: 20130723
  2. LUCENTIS [Suspect]
     Route: 050
     Dates: start: 20140110

REACTIONS (3)
  - Visual acuity reduced [Not Recovered/Not Resolved]
  - Drug ineffective [Unknown]
  - Vision blurred [Recovering/Resolving]
